FAERS Safety Report 9314621 (Version 1)
Quarter: 2013Q2

REPORT INFORMATION
  Report Type: Other
  Country: US (occurrence: US)
  Receive Date: 20130529
  Receipt Date: 20130529
  Transmission Date: 20140414
  Serious: Yes (Hospitalization)
  Sender: FDA-Public Use
  Company Number: US-DYAX CORP.-2013DX000096

PATIENT
  Age: 47 Year
  Sex: Female
  Weight: 53.57 kg

DRUGS (6)
  1. KALBITOR [Suspect]
     Indication: HEREDITARY ANGIOEDEMA
     Route: 058
     Dates: start: 20120402, end: 20120402
  2. KALBITOR [Suspect]
     Dates: end: 201204
  3. CODEINE [Concomitant]
  4. VALIUM [Concomitant]
  5. DILAUDID [Concomitant]
  6. SENNA [Concomitant]

REACTIONS (13)
  - Hypotension [Recovered/Resolved]
  - Dyspnoea [Recovered/Resolved]
  - Chest pain [Recovered/Resolved]
  - Local swelling [Recovered/Resolved]
  - Feeling hot [Recovered/Resolved]
  - Urticaria [Recovered/Resolved]
  - Dehydration [Unknown]
  - Tachycardia [Recovered/Resolved]
  - Urinary tract infection [Unknown]
  - Anxiety [Unknown]
  - Hypersensitivity [Recovered/Resolved]
  - Hereditary angioedema [Unknown]
  - Incorrect route of drug administration [Unknown]
